FAERS Safety Report 23008445 (Version 3)
Quarter: 2025Q3

REPORT INFORMATION
  Report Type: Spontaneous
  Country: US (occurrence: US)
  Receive Date: 20230929
  Receipt Date: 20250805
  Transmission Date: 20251020
  Serious: Yes (Death)
  Sender: NOVARTIS
  Company Number: US-002147023-NVSC2023US210690

PATIENT

DRUGS (1)
  1. PLUVICTO [Suspect]
     Active Substance: LUTETIUM LU-177 VIPIVOTIDE TETRAXETAN
     Indication: Product used for unknown indication
     Route: 065

REACTIONS (1)
  - Death [Fatal]
